FAERS Safety Report 8422836 (Version 2)
Quarter: 2013Q1

REPORT INFORMATION
  Report Type: Spontaneous
  Country: US (occurrence: US)
  Receive Date: 20120223
  Receipt Date: 20130211
  Transmission Date: 20140127
  Serious: Yes (Other)
  Sender: FDA-Public Use
  Company Number: US-GLAXOSMITHKLINE-A0833067A

PATIENT
  Sex: Male
  Weight: 150 kg

DRUGS (8)
  1. AVANDAMET [Suspect]
     Indication: DIABETES MELLITUS
     Route: 048
  2. AVANDIA [Suspect]
     Indication: DIABETES MELLITUS
     Dosage: 4MG TWICE PER DAY
     Route: 048
     Dates: end: 2008
  3. SIMVASTATIN [Concomitant]
  4. AMITRIPTYLINE [Concomitant]
  5. LOSARTAN [Concomitant]
  6. METOPROLOL [Concomitant]
  7. OMEPRAZOLE [Concomitant]
  8. ACTOS [Concomitant]
     Indication: DIABETES MELLITUS
     Dates: start: 200411

REACTIONS (3)
  - Myocardial infarction [Not Recovered/Not Resolved]
  - Cardiac failure congestive [Unknown]
  - Oxygen supplementation [Unknown]
